FAERS Safety Report 16687435 (Version 1)
Quarter: 2019Q4

REPORT INFORMATION
  Report Type: Spontaneous
  Country: US (occurrence: US)
  Receive Date: 20190808
  Receipt Date: 20190808
  Transmission Date: 20200122
  Serious: Yes (Disabling)
  Sender: FDA-Public Use
  Company Number: None

PATIENT
  Age: 38 Year
  Sex: Female
  Weight: 82.8 kg

DRUGS (1)
  1. VYVANSE [Suspect]
     Active Substance: LISDEXAMFETAMINE DIMESYLATE
     Indication: ATTENTION DEFICIT/HYPERACTIVITY DISORDER
     Dosage: ?          QUANTITY:1 CAPSULE(S);?
     Route: 048
     Dates: start: 20190201, end: 20190808

REACTIONS (6)
  - Disturbance in attention [None]
  - Product counterfeit [None]
  - Product formulation issue [None]
  - Condition aggravated [None]
  - Loss of personal independence in daily activities [None]
  - Stress [None]

NARRATIVE: CASE EVENT DATE: 20190301
